FAERS Safety Report 8150356-1 (Version None)
Quarter: 2012Q1

REPORT INFORMATION
  Report Type: 
  Country: None (occurrence: None)
  Receive Date: 20120220
  Receipt Date: 20120216
  Transmission Date: 20120608
  Serious: Yes (Other)
  Sender: FDA-Public Use
  Company Number: SE-PFIZER INC-2012041699

PATIENT
  Age: 69 Year
  Sex: Female
  Weight: 71 kg

DRUGS (12)
  1. PULMICORT-100 [Concomitant]
     Dosage: UNK
  2. TOVIAZ [Suspect]
     Indication: HYPERTONIC BLADDER
     Dosage: 4 MG, UNK
     Dates: start: 20110518
  3. SERTRALINE [Concomitant]
     Dosage: UNK
  4. NEXIUM [Concomitant]
     Dosage: UNK
  5. OMEPRAZOLE [Concomitant]
     Dosage: UNK
  6. BRICANYL [Concomitant]
     Dosage: UNK
  7. MORPHINE [Concomitant]
     Dosage: UNK
  8. NASONEX [Concomitant]
     Dosage: UNK
  9. VAGIFEM [Concomitant]
     Dosage: UNK
  10. DIAZEPAM [Concomitant]
     Dosage: UNK
  11. ACETAMINOPHEN [Concomitant]
     Dosage: UNK
  12. MOVIPREP [Concomitant]
     Dosage: UNK

REACTIONS (1)
  - VAGINAL DISCHARGE [None]
